FAERS Safety Report 4833737-0 (Version None)
Quarter: 2005Q4

REPORT INFORMATION
  Report Type: 
  Country: None (occurrence: None)
  Receive Date: 20051121
  Receipt Date: 20051110
  Transmission Date: 20060501
  Serious: Yes (Hospitalization)
  Sender: FDA-Public Use
  Company Number: FR-ABBOTT-05P-056-0316960-00

PATIENT
  Age: 3 Year
  Sex: Female

DRUGS (4)
  1. DEPAKENE [Suspect]
     Indication: EPILEPSY
     Route: 048
     Dates: start: 20040913, end: 20050804
  2. CLAVULIN [Concomitant]
     Indication: OTITIS MEDIA
     Route: 048
     Dates: start: 20050726, end: 20050729
  3. CLAVULIN [Concomitant]
     Route: 042
     Dates: start: 20050729, end: 20050729
  4. CLONAZEPAM [Concomitant]
     Indication: DRUG USE FOR UNKNOWN INDICATION

REACTIONS (4)
  - COAGULATION TEST ABNORMAL [None]
  - CYTOLYTIC HEPATITIS [None]
  - HEPATITIS [None]
  - OTITIS MEDIA [None]
